FAERS Safety Report 8762005 (Version 3)
Quarter: 2012Q4

REPORT INFORMATION
  Report Type: 
  Country: US (occurrence: US)
  Receive Date: 20120829
  Receipt Date: 20121012
  Transmission Date: 20130627
  Serious: Yes (Other)
  Sender: FDA-Public Use
  Company Number: US-PFIZER INC-2012210232

PATIENT
  Sex: Female

DRUGS (2)
  1. CHANTIX [Suspect]
     Dosage: 0.5 mg, UNK as directed
  2. CHANTIX [Suspect]
     Dosage: 1 mg, UNK as directed

REACTIONS (1)
  - Lung carcinoma cell type unspecified recurrent [Unknown]
